FAERS Safety Report 21063527 (Version 22)
Quarter: 2024Q3

REPORT INFORMATION
  Report Type: Report from Study
  Country: CH (occurrence: CH)
  Receive Date: 20220711
  Receipt Date: 20240813
  Transmission Date: 20241017
  Serious: Yes (Death, Hospitalization, Disabling, Other)
  Sender: NOVARTIS
  Company Number: CH-NOVARTISPH-NVSC2021CH054242

PATIENT
  Age: 75 Year
  Sex: Female
  Weight: 74.2 kg

DRUGS (11)
  1. KISQALI [Suspect]
     Active Substance: RIBOCICLIB
     Indication: Breast cancer
     Dosage: 600 MG
     Route: 048
     Dates: start: 20210217
  2. KISQALI [Suspect]
     Active Substance: RIBOCICLIB
     Dosage: 600 MG
     Route: 065
     Dates: start: 20220706
  3. KISQALI [Suspect]
     Active Substance: RIBOCICLIB
     Dosage: 200 MG
     Route: 065
  4. KISQALI [Suspect]
     Active Substance: RIBOCICLIB
     Dosage: 600 MG
     Route: 065
     Dates: end: 20220928
  5. FEMARA [Suspect]
     Active Substance: LETROZOLE
     Indication: Breast cancer
     Dosage: 2.5 MG
     Route: 048
     Dates: start: 20210217
  6. LORAZEPAM [Concomitant]
     Active Substance: LORAZEPAM
     Indication: Anxiolytic therapy
     Dosage: 2.5 MG, QD (BEFORE INCLUSION)
     Route: 065
  7. IVABRADINE [Concomitant]
     Active Substance: IVABRADINE
     Indication: Tachycardia
     Dosage: 5 MG, QD
     Route: 065
     Dates: start: 20210113
  8. BISOPROLOL [Concomitant]
     Active Substance: BISOPROLOL\BISOPROLOL FUMARATE
     Indication: Product used for unknown indication
     Dosage: 5 MG, QD (BEFORE INCLUSION)
     Route: 065
  9. AMITRIPTYLINE [Concomitant]
     Active Substance: AMITRIPTYLINE
     Indication: Fibromyalgia
     Dosage: 75 MG, QD (BEFORE INCLUSION)
     Route: 065
  10. CALCIUM\CHOLECALCIFEROL [Concomitant]
     Active Substance: CALCIUM\CHOLECALCIFEROL
     Indication: Osteoporosis
     Dosage: 800/1000 MG
     Route: 065
     Dates: start: 20210217
  11. ALUMINUM HYDROXIDE\MAGNESIUM HYDROXIDE [Concomitant]
     Active Substance: ALUMINUM HYDROXIDE\MAGNESIUM HYDROXIDE
     Indication: Abdominal pain upper
     Dosage: UNK
     Route: 065
     Dates: start: 20210303

REACTIONS (23)
  - Large intestine infection [Fatal]
  - Psychiatric decompensation [Unknown]
  - Ischaemic stroke [Recovered/Resolved]
  - Anxiety [Recovering/Resolving]
  - Neutrophil count decreased [Not Recovered/Not Resolved]
  - White blood cell count decreased [Recovered/Resolved]
  - Melanocytic naevus [Recovered/Resolved]
  - Blood lactate dehydrogenase increased [Recovered/Resolved]
  - Nausea [Recovered/Resolved]
  - Decreased appetite [Recovered/Resolved]
  - White blood cell count decreased [Recovered/Resolved]
  - Anaemia [Not Recovered/Not Resolved]
  - Platelet count decreased [Recovered/Resolved]
  - Lymphocyte count decreased [Unknown]
  - Blood creatinine increased [Recovered/Resolved]
  - Back pain [Recovered/Resolved]
  - Pruritus [Recovered/Resolved]
  - Diarrhoea [Recovered/Resolved]
  - Urinary tract infection [Recovered/Resolved]
  - Blood lactate dehydrogenase increased [Recovered/Resolved]
  - White blood cell count decreased [Not Recovered/Not Resolved]
  - Blood creatinine increased [Unknown]
  - Medication error [Recovered/Resolved]

NARRATIVE: CASE EVENT DATE: 20210317
